FAERS Safety Report 13017159 (Version 1)
Quarter: 2016Q4

REPORT INFORMATION
  Report Type: Spontaneous
  Country: DE (occurrence: DE)
  Receive Date: 20161212
  Receipt Date: 20161212
  Transmission Date: 20170207
  Serious: Yes (Death, Other)
  Sender: FDA-Public Use
  Company Number: DE-SUN PHARMACEUTICAL INDUSTRIES LTD-2016RR-129134

PATIENT
  Age: 1 Day
  Sex: Male
  Weight: .44 kg

DRUGS (6)
  1. FAMENITA [Concomitant]
     Active Substance: PROGESTERONE
     Indication: PROPHYLAXIS OF ABORTION
     Dosage: 100 MG, DAILY, 0-23.3 GESTATIONAL WEEK
     Route: 064
     Dates: start: 20151013, end: 20160325
  2. MAGNESIUM [Concomitant]
     Active Substance: MAGNESIUM
     Indication: PRODUCT USED FOR UNKNOWN INDICATION
     Dosage: 17.6-23.3 GESTATIONAL WEEK
     Route: 064
  3. VENLAFAXINE [Suspect]
     Active Substance: VENLAFAXINE HYDROCHLORIDE
     Indication: DEPRESSION
     Dosage: 150 MG, DAILY, 0-23.3 GESTATIONAL WEEK
     Route: 064
     Dates: start: 20151013, end: 20160325
  4. METFORMIN [Concomitant]
     Active Substance: METFORMIN HYDROCHLORIDE
     Indication: INFERTILITY FEMALE
     Dosage: 750 MG, DAILY, 0-9 GESTATIONAL WEEK
     Route: 064
  5. L-THYROXIN [Concomitant]
     Active Substance: LEVOTHYROXINE SODIUM
     Indication: HYPOTHYROIDISM
     Dosage: 25 ?G, DAILY, 0-23.3 GESTATIONAL WEEK
     Route: 064
     Dates: start: 20151013, end: 20160325
  6. FEMIBION [Concomitant]
     Active Substance: VITAMINS
     Indication: PROPHYLAXIS OF NEURAL TUBE DEFECT
     Dosage: 0-23.3 GESTATIONAL WEEK
     Route: 064
     Dates: start: 20151013, end: 20160325

REACTIONS (1)
  - Premature baby death [Fatal]

NARRATIVE: CASE EVENT DATE: 20160325
